FAERS Safety Report 15961797 (Version 3)
Quarter: 2019Q1

REPORT INFORMATION
  Report Type: Spontaneous
  Country: ES (occurrence: ES)
  Receive Date: 20190214
  Receipt Date: 20190314
  Transmission Date: 20190417
  Serious: Yes (Hospitalization)
  Sender: FDA-Public Use
  Company Number: ES-TEVA-2019-ES-1011246

PATIENT
  Age: 89 Year
  Sex: Male

DRUGS (3)
  1. AAS [Interacting]
     Active Substance: ASPIRIN
     Dates: start: 20180214, end: 20180221
  2. CLOPIDOGREL [Suspect]
     Active Substance: CLOPIDOGREL BISULFATE
     Dosage: 75 MILLIGRAM DAILY;
     Route: 048
     Dates: start: 20180214, end: 20180221
  3. FONDAPARINUX [Interacting]
     Active Substance: FONDAPARINUX
     Dates: start: 20180214, end: 20180221

REACTIONS (2)
  - Haematuria [Recovered/Resolved]
  - Drug interaction [Unknown]

NARRATIVE: CASE EVENT DATE: 20180217
